FAERS Safety Report 24681388 (Version 1)
Quarter: 2024Q4

REPORT INFORMATION
  Report Type: Spontaneous
  Country: GB (occurrence: GB)
  Receive Date: 20241129
  Receipt Date: 20241129
  Transmission Date: 20250115
  Serious: Yes (Other)
  Sender: TEVA
  Company Number: GB-MHRA-33971997

PATIENT
  Age: 71 Year
  Sex: Female
  Weight: 65 kg

DRUGS (5)
  1. RAMIPRIL [Suspect]
     Active Substance: RAMIPRIL
     Indication: Neck pain
     Dosage: 1.25MG CAPSULES
     Route: 048
  2. SARS-COV-2 [Concomitant]
     Active Substance: SARS-COV-2
     Indication: Product used for unknown indication
     Dosage: IMMUNISATION COURSE TO MAINTAIN PROTECTION AGAINST
     Dates: start: 20241010, end: 20241010
  3. FENBID [Concomitant]
     Indication: Product used for unknown indication
     Dosage: APPLYTHREE TIME,  5% GEL (ADVANZ PHARMA)
     Route: 065
  4. LIDOCAINE HYDROCHLORIDE\METHYLPREDNISOLONE ACETATE [Concomitant]
     Active Substance: LIDOCAINE HYDROCHLORIDE\METHYLPREDNISOLONE ACETATE
     Indication: Product used for unknown indication
     Dosage: SUSPENSION FOR INJECTION 1M
     Route: 065
  5. LOSARTAN [Concomitant]
     Active Substance: LOSARTAN
     Indication: Product used for unknown indication
     Dosage: 1 TABLET ONCE A, 12.5MG TABLETS, DAILY DOSE: 12.5 MG DAILY
     Route: 065
     Dates: start: 20241113

REACTIONS (2)
  - Depression [Recovered/Resolved]
  - Decreased appetite [Unknown]

NARRATIVE: CASE EVENT DATE: 20241104
